FAERS Safety Report 19598040 (Version 1)
Quarter: 2021Q3

REPORT INFORMATION
  Report Type: Spontaneous
  Country: US (occurrence: US)
  Receive Date: 20210722
  Receipt Date: 20210722
  Transmission Date: 20211014
  Serious: Yes (Other)
  Sender: FDA-Public Use
  Company Number: None

PATIENT
  Age: 37 Year
  Sex: Male
  Weight: 67.5 kg

DRUGS (6)
  1. VITAMIN D [Concomitant]
     Active Substance: VITAMIN D NOS
  2. FLONASE [Concomitant]
     Active Substance: FLUTICASONE PROPIONATE
  3. LAMICTAL [Concomitant]
     Active Substance: LAMOTRIGINE
  4. TRAZODONE [Concomitant]
     Active Substance: TRAZODONE HYDROCHLORIDE
  5. VRAYLAR [Concomitant]
     Active Substance: CARIPRAZINE
  6. PROPECIA [Suspect]
     Active Substance: FINASTERIDE
     Indication: ANDROGENETIC ALOPECIA
     Dosage: ?          QUANTITY:1 TABLET(S);?
     Route: 048
     Dates: start: 20010801, end: 20190901

REACTIONS (2)
  - Sexual dysfunction [None]
  - Feelings of worthlessness [None]

NARRATIVE: CASE EVENT DATE: 20190901
